FAERS Safety Report 14782322 (Version 1)
Quarter: 2018Q2

REPORT INFORMATION
  Report Type: Spontaneous
  Country: FR (occurrence: FR)
  Receive Date: 20180420
  Receipt Date: 20180420
  Transmission Date: 20180711
  Serious: Yes (Other)
  Sender: FDA-Public Use
  Company Number: FR-MERCK KGAA-2046121

PATIENT
  Sex: Female

DRUGS (2)
  1. NOVOTHYROX [Suspect]
     Active Substance: LEVOTHYROXINE SODIUM
     Indication: PRODUCT USED FOR UNKNOWN INDICATION
  2. NOVOTHYROX [Suspect]
     Active Substance: LEVOTHYROXINE SODIUM

REACTIONS (15)
  - Neuralgia [None]
  - Alopecia [None]
  - Hot flush [None]
  - Amnesia [None]
  - Suicidal ideation [None]
  - Chest pain [None]
  - Myalgia [None]
  - Ill-defined disorder [None]
  - Feeling abnormal [None]
  - Depression [None]
  - Diarrhoea [None]
  - Insomnia [None]
  - Irritability [None]
  - Gait disturbance [None]
  - Migraine [None]
